FAERS Safety Report 6908254-4 (Version None)
Quarter: 2010Q3

REPORT INFORMATION
  Report Type: 
  Country: None (occurrence: None)
  Receive Date: 20100805
  Receipt Date: 20100802
  Transmission Date: 20110219
  Serious: Yes (Hospitalization)
  Sender: FDA-Public Use
  Company Number: AU-ROCHE-714887

PATIENT
  Sex: Male
  Weight: 75 kg

DRUGS (10)
  1. CAPECITABINE [Suspect]
     Indication: COLORECTAL CANCER
     Dosage: DOSE: 5 GM,CURRENT CYCLE 3, DATE MOSTRECENT DOSE GIVEN: 10 JULY 2010, PERCENTAGE DOSE REDUCTION: 0.
     Route: 048
     Dates: start: 20100531
  2. CAPECITABINE [Suspect]
     Dosage: RECHALLENGE, DOSE OF CAPECITABINE WAS REDUCED.
     Route: 048
     Dates: start: 20100726
  3. BEVACIZUMAB [Suspect]
     Indication: COLORECTAL CANCER
     Dosage: FORM: INFUSION, CURRENT CYCLE 3, PERCENTAGE REDUCTION: 0, DATE  RECENT DOSE: 28 JUN 2010, INTERUPTED
     Route: 042
     Dates: start: 20100531
  4. BEVACIZUMAB [Suspect]
     Dosage: RECHALLENGE
     Route: 042
     Dates: start: 20100726
  5. OXYCODONE HCL [Concomitant]
     Indication: PAIN
     Dosage: DOSE: 5-15 MG
     Route: 048
     Dates: start: 20100710
  6. MORPHINE [Concomitant]
     Indication: PAIN
     Dosage: DATE MOST RECENT DOSE GIVE: 13 JULY 2010
     Route: 058
     Dates: start: 20100712
  7. TAZOCIN [Concomitant]
     Indication: INFECTION
     Route: 042
     Dates: start: 20100711
  8. RAMIPRIL [Concomitant]
     Indication: HYPERTENSION
     Route: 048
     Dates: start: 20100621
  9. PARACETAMOL [Concomitant]
     Indication: PAIN
     Route: 048
     Dates: start: 20100711
  10. AUGMENTIN FORTE DUO [Concomitant]
     Indication: INFECTION
     Dosage: DOSE: 875/125 MG
     Route: 048
     Dates: start: 20100717, end: 20100721

REACTIONS (1)
  - INTESTINAL OBSTRUCTION [None]
